FAERS Safety Report 8494503-0 (Version None)
Quarter: 2012Q3

REPORT INFORMATION
  Report Type: 
  Country: None (occurrence: None)
  Receive Date: 20120709
  Receipt Date: 20111214
  Transmission Date: 20120928
  Serious: No
  Sender: FDA-Public Use
  Company Number: US-COVIDIEN/TYCO HEALTHCARE/MALLINCKRODT-T201102914

PATIENT
  Sex: Female
  Weight: 74.83 kg

DRUGS (3)
  1. CYMBALTA [Concomitant]
     Indication: FIBROMYALGIA
     Dosage: 60 MG, QD
     Route: 048
  2. LYRICA [Concomitant]
     Indication: FIBROMYALGIA
     Dosage: 120 MG, QD
     Route: 048
  3. OXYCODONE/ACETAMINOPHEN [Suspect]
     Indication: FIBROMYALGIA
     Dosage: 1 TAB, PRN (NOT TO EXCEED THREE TABS QD)
     Dates: start: 20110801

REACTIONS (1)
  - DRUG SCREEN POSITIVE [None]
